FAERS Safety Report 26128336 (Version 1)
Quarter: 2025Q4

REPORT INFORMATION
  Report Type: Spontaneous
  Country: JP (occurrence: JP)
  Receive Date: 20251207
  Receipt Date: 20251207
  Transmission Date: 20260118
  Serious: Yes (Life-Threatening, Hospitalization, Other)
  Sender: MERCK SHARP & DOHME LLC
  Company Number: JP-MSD-M2023-31250

PATIENT
  Age: 80 Year
  Sex: Male
  Weight: 33 kg

DRUGS (1)
  1. PEMBROLIZUMAB [Suspect]
     Active Substance: PEMBROLIZUMAB
     Indication: Hodgkin^s disease recurrent
     Dosage: DOSE DESCRIPTION : 200 MILLIGRAM, Q3W?DAILY DOSE : 9.4 MILLIGRAM?REGIMEN DOSE : 1200  MILLIGRAM?R...
     Route: 042
     Dates: start: 20230228, end: 20230626

REACTIONS (5)
  - Cardiogenic shock [Recovering/Resolving]
  - Steroid diabetes [Unknown]
  - Immune-mediated myocarditis [Recovered/Resolved]
  - Fall [Unknown]
  - Dizziness [Unknown]

NARRATIVE: CASE EVENT DATE: 20230101
